FAERS Safety Report 5736847-9 (Version None)
Quarter: 2008Q2

REPORT INFORMATION
  Report Type: 
  Country: None (occurrence: None)
  Receive Date: 20080508
  Receipt Date: 20080424
  Transmission Date: 20081010
  Serious: Yes (Hospitalization)
  Sender: FDA-Public Use
  Company Number: 220001L08NLD

PATIENT
  Age: 40 Year
  Sex: Male

DRUGS (1)
  1. SOMATROPIN (SOMATROPIN) [Suspect]
     Indication: OFF LABEL USE
     Dosage: 0.6 MG, 1 IN 1 DAYS, SUBCUTANEOUS
     Route: 058

REACTIONS (3)
  - OFF LABEL USE [None]
  - OVERDOSE [None]
  - PANCREATITIS ACUTE [None]
